FAERS Safety Report 10581583 (Version 3)
Quarter: 2014Q4

REPORT INFORMATION
  Report Type: Spontaneous
  Country: US (occurrence: None)
  Receive Date: 20141110
  Receipt Date: 20141209
  Transmission Date: 20150529
  Serious: Yes (Other)
  Sender: FDA-Public Use
  Company Number: 2014-US-013940

PATIENT
  Age: 50 Year
  Sex: Female

DRUGS (8)
  1. CELEXA [Concomitant]
     Active Substance: CITALOPRAM HYDROBROMIDE
  2. BUSPAR (BUSPIRONE HYDROCHLORIDE) [Concomitant]
  3. XYREM [Suspect]
     Active Substance: SODIUM OXYBATE
     Indication: NARCOLEPSY
     Route: 048
     Dates: start: 200408, end: 200408
  4. IBUPROFEN. [Concomitant]
     Active Substance: IBUPROFEN
  5. XYREM [Suspect]
     Active Substance: SODIUM OXYBATE
     Indication: CATAPLEXY
     Route: 048
     Dates: start: 200408, end: 200408
  6. KLONOPIN [Concomitant]
     Active Substance: CLONAZEPAM
  7. TRAMADOL [Suspect]
     Active Substance: TRAMADOL
     Indication: PAIN
     Dosage: UNKNOWN DOSE
     Dates: start: 20141011, end: 201410
  8. ARMOUR THYROID (THYROID) [Concomitant]

REACTIONS (7)
  - Fall [None]
  - Facial bones fracture [None]
  - Laceration [None]
  - Rash [None]
  - Muscular weakness [None]
  - Abdominal pain upper [None]
  - Contusion [None]

NARRATIVE: CASE EVENT DATE: 20141011
